FAERS Safety Report 10170884 (Version 1)
Quarter: 2014Q2

REPORT INFORMATION
  Report Type: Spontaneous
  Country: FR (occurrence: None)
  Receive Date: 20140512
  Receipt Date: 20140512
  Transmission Date: 20141212
  Serious: Yes (Death)
  Sender: FDA-Public Use
  Company Number: SYM-2014-20594

PATIENT
  Age: 62 Year
  Sex: Female

DRUGS (11)
  1. MONO-TILDIEM (DILTIAZEM HYDROCHLORIDE) (300 MG, GASTRO-RESISTANT CAPSULE) [Suspect]
     Indication: HYPERTENSION
     Route: 048
  2. PROCORALAN [Suspect]
     Indication: CARDIAC FAILURE
     Route: 048
     Dates: start: 20100909, end: 20100913
  3. RIVOTRIL [Concomitant]
  4. ALDALIX [Concomitant]
  5. FLUOXETINE [Concomitant]
  6. ZYRTEC [Concomitant]
  7. VENTOLINE [Concomitant]
  8. SYMBICORT TURBUHALER [Concomitant]
  9. NOCTAMIDE [Concomitant]
  10. PARIET [Concomitant]
  11. GLUCOPHAGE [Concomitant]

REACTIONS (9)
  - Torsade de pointes [None]
  - Cardiac arrest [None]
  - Anoxia [None]
  - Coma [None]
  - Atrial fibrillation [None]
  - Escherichia urinary tract infection [None]
  - Diaphragmatic hernia [None]
  - Myoclonus [None]
  - Hyporeflexia [None]
